FAERS Safety Report 7197976-9 (Version None)
Quarter: 2010Q4

REPORT INFORMATION
  Report Type: 
  Country: None (occurrence: None)
  Receive Date: 20101227
  Receipt Date: 20101216
  Transmission Date: 20110411
  Serious: Yes (Other)
  Sender: FDA-Public Use
  Company Number: ES-ROCHE-748924

PATIENT
  Age: 71 Year
  Sex: Female

DRUGS (6)
  1. AVASTIN [Suspect]
     Route: 042
     Dates: start: 20100510
  2. FLUOROURACIL [Suspect]
     Dosage: DRUG NAME: FLUOROURACILO FERRER FARMA
     Route: 042
     Dates: start: 20100510
  3. DEXAMETASONE [Suspect]
     Route: 042
     Dates: start: 20100510
  4. FOLIC ACID [Suspect]
     Dosage: DRUG NAME: FOLINATO CALCICO NORMON
     Route: 042
     Dates: start: 20100510
  5. IRINOTECAN HCL [Suspect]
     Dosage: DRUG NAME: IRINOTECAN KABI
     Route: 042
     Dates: start: 20100510
  6. ONDANSETRON HYDROCHLORIDE DIHYDRATE [Suspect]
     Dosage: DRUG NAME: ONDANSETRON MYLAN
     Route: 042
     Dates: start: 20100510

REACTIONS (1)
  - DYSTONIA [None]
